FAERS Safety Report 16037950 (Version 3)
Quarter: 2019Q2

REPORT INFORMATION
  Report Type: Report from Study
  Country: US (occurrence: US)
  Receive Date: 20190305
  Receipt Date: 20190610
  Transmission Date: 20190711
  Serious: Yes (Other)
  Sender: FDA-Public Use
  Company Number: PHEH2019US009290

PATIENT
  Sex: Male

DRUGS (1)
  1. COSENTYX [Suspect]
     Active Substance: SECUKINUMAB
     Indication: PSORIATIC ARTHROPATHY
     Dosage: 300 MG, QMO
     Route: 058

REACTIONS (7)
  - Dyspnoea [Unknown]
  - Arthralgia [Unknown]
  - Total lung capacity decreased [Unknown]
  - Back pain [Unknown]
  - Influenza [Unknown]
  - Macule [Unknown]
  - Pneumoconiosis [Unknown]
